FAERS Safety Report 14425325 (Version 1)
Quarter: 2018Q1

REPORT INFORMATION
  Report Type: Spontaneous
  Country: US (occurrence: US)
  Receive Date: 20180123
  Receipt Date: 20180123
  Transmission Date: 20180509
  Serious: No
  Sender: FDA-Public Use
  Company Number: US-HERITAGE PHARMACEUTICALS-2017HTG00028

PATIENT
  Sex: Female
  Weight: 65.76 kg

DRUGS (3)
  1. METHIMAZOLE. [Suspect]
     Active Substance: METHIMAZOLE
     Dosage: 30 MG, UNK
     Dates: start: 2008
  2. METHIMAZOLE. [Suspect]
     Active Substance: METHIMAZOLE
     Dosage: 10 MG, 1X/WEEK (ON THE OTHER DAY)
     Route: 048
  3. METHIMAZOLE. [Suspect]
     Active Substance: METHIMAZOLE
     Indication: HYPERTHYROIDISM
     Dosage: 5 MG, 1X/DAY (FOR 6/7 DAYS PER WEEK)
     Route: 048

REACTIONS (1)
  - Pruritus generalised [Not Recovered/Not Resolved]
